FAERS Safety Report 8106940-4 (Version None)
Quarter: 2011Q4

REPORT INFORMATION
  Report Type: 
  Country: None (occurrence: None)
  Receive Date: 20111223
  Receipt Date: 20111017
  Transmission Date: 20120403
  Serious: Yes (Other)
  Sender: FDA-Public Use
  Company Number: PHEH2011US06992

PATIENT
  Age: 12 Year
  Sex: Female

DRUGS (2)
  1. FOCALIN XR (DEXMETHYLPHENIDATE HYDROCHLORIDE) [Concomitant]
  2. RITALIN [Suspect]
     Indication: ATTENTION DEFICIT/HYPERACTIVITY DISORDER
     Dosage: 15 MG, DAILY

REACTIONS (5)
  - WEIGHT GAIN POOR [None]
  - EATING DISORDER [None]
  - HEADACHE [None]
  - INSOMNIA [None]
  - GROWTH RETARDATION [None]
